FAERS Safety Report 7479549-3 (Version None)
Quarter: 2011Q2

REPORT INFORMATION
  Report Type: 
  Country: None (occurrence: None)
  Receive Date: 20110513
  Receipt Date: 20110506
  Transmission Date: 20111010
  Serious: Yes (Death, Other)
  Sender: FDA-Public Use
  Company Number: JP-AMGEN-JPNCT2011023478

PATIENT
  Age: 75 Year
  Sex: Female
  Weight: 47 kg

DRUGS (4)
  1. VECTIBIX [Suspect]
     Indication: COLORECTAL CANCER METASTATIC
     Dosage: 84 ML, Q2WK
     Route: 041
     Dates: start: 20110427, end: 20110427
  2. DEXART [Concomitant]
     Route: 041
     Dates: start: 20110427, end: 20110427
  3. POLARAMINE [Concomitant]
     Route: 041
     Dates: start: 20110427, end: 20110427
  4. SEISHOKU [Concomitant]
     Route: 041
     Dates: start: 20110427, end: 20110427

REACTIONS (3)
  - HAEMORRHAGE INTRACRANIAL [None]
  - INFUSION RELATED REACTION [None]
  - HAEMORRHAGIC DIATHESIS [None]
